FAERS Safety Report 9795088 (Version 2)
Quarter: 2014Q1

REPORT INFORMATION
  Report Type: Spontaneous
  Country: US (occurrence: US)
  Receive Date: 20140103
  Receipt Date: 20140106
  Transmission Date: 20141002
  Serious: No
  Sender: FDA-Public Use
  Company Number: US-009507513-1401USA000136

PATIENT
  Sex: 0
  Weight: 48.53 kg

DRUGS (2)
  1. NEXPLANON [Suspect]
     Dosage: 1 ROD/THREE YEARS
     Route: 059
     Dates: start: 20131226, end: 20131226
  2. NEXPLANON [Suspect]
     Dosage: 1 ROD/THREE YEARS
     Route: 059
     Dates: start: 20131226

REACTIONS (3)
  - Device deployment issue [Recovered/Resolved]
  - Device difficult to use [Recovered/Resolved]
  - No adverse event [Unknown]
